FAERS Safety Report 25621892 (Version 1)
Quarter: 2025Q3

REPORT INFORMATION
  Report Type: Spontaneous
  Country: PR (occurrence: PR)
  Receive Date: 20250730
  Receipt Date: 20250730
  Transmission Date: 20251021
  Serious: Yes (Death, Hospitalization)
  Sender: MYLAN
  Company Number: PR-MYLANLABS-2025M1062825

PATIENT
  Age: 44 Year
  Sex: Male

DRUGS (4)
  1. DOXYCYCLINE [Suspect]
     Active Substance: DOXYCYCLINE
     Indication: Leptospirosis
  2. CEFTRIAXONE [Suspect]
     Active Substance: CEFTRIAXONE
     Indication: Leptospirosis
  3. VANCOMYCIN [Suspect]
     Active Substance: VANCOMYCIN
     Indication: Leptospirosis
  4. PIPERACILLIN AND TAZOBACTAM [Suspect]
     Active Substance: PIPERACILLIN SODIUM\TAZOBACTAM SODIUM
     Indication: Leptospirosis

REACTIONS (2)
  - Drug ineffective [Fatal]
  - Off label use [Unknown]
